FAERS Safety Report 11964526 (Version 1)
Quarter: 2016Q1

REPORT INFORMATION
  Report Type: Spontaneous
  Country: US (occurrence: US)
  Receive Date: 20160127
  Receipt Date: 20160127
  Transmission Date: 20160526
  Serious: Yes (Hospitalization, Other)
  Sender: FDA-Public Use
  Company Number: PHHY2015US108005

PATIENT
  Age: 23 Year
  Sex: Male

DRUGS (7)
  1. BACLOFEN. [Suspect]
     Active Substance: BACLOFEN
     Indication: PRODUCT USED FOR UNKNOWN INDICATION
     Dosage: 10 MG, TID, FOR ONE WEEK
     Route: 048
  2. LIORESAL [Suspect]
     Active Substance: BACLOFEN
     Indication: CEREBRAL PALSY
     Dosage: DOWN BACLOFEN IN THE PUMP 10 TO15 PERCENT EACH DAY, UNITL  DOSE WAS DOWN TO 50 PERCENT
     Route: 037
  3. ACCUTANE [Suspect]
     Active Substance: ISOTRETINOIN
     Indication: PRODUCT USED FOR UNKNOWN INDICATION
     Dosage: UNK, 6 MONTH
     Route: 065
  4. FLUOXETINE [Suspect]
     Active Substance: FLUOXETINE HYDROCHLORIDE
     Indication: ANXIETY
     Dosage: 10 MG, QD
     Route: 065
  5. LIORESAL [Suspect]
     Active Substance: BACLOFEN
     Indication: MUSCLE SPASTICITY
     Dosage: 50 UG, QD
     Route: 037
  6. ALEVE [Suspect]
     Active Substance: NAPROXEN SODIUM
     Indication: PAIN
     Dosage: UNK
     Route: 065
  7. BACLOFEN. [Suspect]
     Active Substance: BACLOFEN
     Dosage: BACLOFEN WAS CUT DOWN EVERY 4 DAYS, 5 MG PER DAY UNTIL THE PATIENT WAS WEANED OFF BACLOFEN
     Route: 048
     Dates: end: 201510

REACTIONS (17)
  - Muscle contracture [Unknown]
  - Hyperhidrosis [Unknown]
  - Medical device site infection [Unknown]
  - Infection [Recovered/Resolved]
  - Pain in extremity [Unknown]
  - Abdominal pain [Unknown]
  - Vomiting [Unknown]
  - Heart rate increased [Unknown]
  - Autonomic nervous system imbalance [Unknown]
  - Medical device site erythema [Unknown]
  - Implant site haemorrhage [Unknown]
  - Abdominal tenderness [Unknown]
  - Pyrexia [Unknown]
  - Medical device site pain [Unknown]
  - Abnormal dreams [Unknown]
  - Staphylococcal infection [Unknown]
  - Anxiety [Unknown]

NARRATIVE: CASE EVENT DATE: 20150816
